FAERS Safety Report 5202076-0 (Version None)
Quarter: 2007Q1

REPORT INFORMATION
  Report Type: 
  Country: None (occurrence: None)
  Receive Date: 20070103
  Receipt Date: 20061228
  Transmission Date: 20070707
  Serious: Yes (Hospitalization)
  Sender: FDA-Public Use
  Company Number: HQWYE277010JAN06

PATIENT
  Age: 80 Year
  Sex: Female

DRUGS (2)
  1. CORDARONE [Suspect]
     Indication: ATRIAL FIBRILLATION
     Dosage: ORAL
     Route: 048
     Dates: start: 20050801, end: 20051101
  2. CORDARONE [Suspect]
     Indication: ATRIAL FLUTTER
     Dosage: ORAL
     Route: 048
     Dates: start: 20050801, end: 20051101

REACTIONS (5)
  - BRONCHOPNEUMOPATHY [None]
  - CARDIAC FAILURE [None]
  - CONDITION AGGRAVATED [None]
  - HYPERTHYROIDISM [None]
  - TOXIC NODULAR GOITRE [None]
